FAERS Safety Report 20847552 (Version 2)
Quarter: 2022Q4

REPORT INFORMATION
  Report Type: Spontaneous
  Country: JP (occurrence: JP)
  Receive Date: 20220519
  Receipt Date: 20221018
  Transmission Date: 20230112
  Serious: Yes (Hospitalization, Other)
  Sender: FDA-Public Use
  Company Number: JP-IPCA LABORATORIES LIMITED-IPC-2022-JP-000590

PATIENT

DRUGS (12)
  1. FUROSEMIDE [Suspect]
     Active Substance: FUROSEMIDE
     Indication: Cardiac failure chronic
     Dosage: 40 MILLIGRAM, QD
     Route: 042
     Dates: start: 201901
  2. WARFARIN [Interacting]
     Active Substance: WARFARIN
     Indication: Atrial fibrillation
     Dosage: 1 MILLIGRAM, QD
     Route: 065
  3. WARFARIN [Interacting]
     Active Substance: WARFARIN
     Dosage: 0.5 MILLIGRAM, QD
     Route: 065
     Dates: start: 201903
  4. WARFARIN [Interacting]
     Active Substance: WARFARIN
     Dosage: 1 MILLIGRAM, QD
     Route: 065
     Dates: start: 201910
  5. TOLVAPTAN [Interacting]
     Active Substance: TOLVAPTAN
     Indication: Cardiac failure chronic
     Dosage: 7.5 MILLIGRAM, QD
     Route: 065
  6. TOLVAPTAN [Interacting]
     Active Substance: TOLVAPTAN
     Dosage: 15 MILLIGRAM, QD
     Route: 065
     Dates: start: 201901
  7. TOLVAPTAN [Interacting]
     Active Substance: TOLVAPTAN
     Dosage: 7.5 MILLIGRAM, QD
     Route: 065
     Dates: start: 201910
  8. CARPERITIDE [Suspect]
     Active Substance: CARPERITIDE
     Indication: Cardiac failure congestive
     Dosage: 0.012 MICROGRAM PER MINUTE/KILOGRAM
     Route: 042
     Dates: start: 201901
  9. SPIRONOLACTONE [Concomitant]
     Active Substance: SPIRONOLACTONE
     Indication: Cardiac failure congestive
     Dosage: 25 MILLIGRAM, QD
     Route: 048
     Dates: start: 201901
  10. AZOSEMIDE [Concomitant]
     Active Substance: AZOSEMIDE
     Indication: Cardiac failure congestive
     Dosage: 30 MILLIGRAM, QD
     Route: 065
     Dates: start: 201901
  11. AZOSEMIDE [Concomitant]
     Active Substance: AZOSEMIDE
     Dosage: 60 MILLIGRAM, QD
     Route: 065
     Dates: start: 201901
  12. HEPARIN [Concomitant]
     Active Substance: HEPARIN SODIUM
     Indication: Cardiac failure
     Dosage: UNK
     Route: 042
     Dates: start: 201910

REACTIONS (7)
  - Weight decreased [Recovering/Resolving]
  - Cardiac failure [Recovering/Resolving]
  - Altered state of consciousness [Recovering/Resolving]
  - Hemiplegia [Recovering/Resolving]
  - Cerebral infarction [Recovering/Resolving]
  - Prothrombin time ratio increased [Recovering/Resolving]
  - Drug interaction [Unknown]

NARRATIVE: CASE EVENT DATE: 20190101
